FAERS Safety Report 17024970 (Version 1)
Quarter: 2019Q4

REPORT INFORMATION
  Report Type: Report from Study
  Country: JP (occurrence: JP)
  Receive Date: 20191113
  Receipt Date: 20191113
  Transmission Date: 20200122
  Serious: Yes (Other)
  Sender: FDA-Public Use
  Company Number: JP-ROCHE-2471419

PATIENT

DRUGS (5)
  1. AFATINIB [Suspect]
     Active Substance: AFATINIB
     Indication: LUNG ADENOCARCINOMA
     Route: 065
  2. OSIMERTINIB. [Suspect]
     Active Substance: OSIMERTINIB
     Indication: LUNG ADENOCARCINOMA
     Route: 065
  3. BEVACIZUMAB. [Suspect]
     Active Substance: BEVACIZUMAB
     Indication: LUNG ADENOCARCINOMA
     Route: 065
  4. GEFITINIB. [Suspect]
     Active Substance: GEFITINIB
     Indication: LUNG ADENOCARCINOMA
     Route: 065
  5. ERLOTINIB [Suspect]
     Active Substance: ERLOTINIB
     Indication: LUNG ADENOCARCINOMA
     Route: 065

REACTIONS (11)
  - Diarrhoea [Unknown]
  - Proteinuria [Unknown]
  - Fatigue [Unknown]
  - Aspartate aminotransferase abnormal [Unknown]
  - Hypoaesthesia [Unknown]
  - Skin ulcer [Unknown]
  - Alanine aminotransferase abnormal [Unknown]
  - Subdural haematoma [Unknown]
  - Rash [Unknown]
  - Decreased appetite [Unknown]
  - Anaemia [Unknown]
